FAERS Safety Report 8789587 (Version 1)
Quarter: 2012Q4

REPORT INFORMATION
  Report Type: Spontaneous
  Country: US (occurrence: None)
  Receive Date: 20120910
  Receipt Date: 20120910
  Transmission Date: 20130627
  Serious: Yes (Other)
  Sender: FDA-Public Use
  Company Number: None

PATIENT
  Age: 92 Year
  Sex: Female
  Weight: 68.04 kg

DRUGS (1)
  1. PROLIA [Suspect]
     Indication: BONE DISORDER
     Dates: start: 20120521

REACTIONS (4)
  - Pain [None]
  - Pain in extremity [None]
  - Pain in extremity [None]
  - Osteoarthritis [None]
